FAERS Safety Report 8756350 (Version 4)
Quarter: 2012Q4

REPORT INFORMATION
  Report Type: Report from Study
  Country: DE (occurrence: DE)
  Receive Date: 20120828
  Receipt Date: 20121224
  Transmission Date: 20130627
  Serious: Yes (Death, Life-Threatening, Hospitalization, Other)
  Sender: FDA-Public Use
  Company Number: DE-GENZYME-CLOF-1002272

PATIENT
  Age: 52 Year
  Sex: Female
  Weight: 65 kg

DRUGS (7)
  1. EVOLTRA [Suspect]
     Indication: ACUTE MYELOID LEUKAEMIA
     Dosage: 45.9 mg, qd
     Route: 065
     Dates: start: 20120803, end: 20120807
  2. CYTARABINE [Suspect]
     Indication: ACUTE MYELOID LEUKAEMIA
     Dosage: 1530 mg, qd
     Route: 065
     Dates: start: 20120803
  3. ACICLOVIR [Concomitant]
     Indication: PRODUCT USED FOR UNKNOWN INDICATION
     Dosage: 1500 mg, qd
     Route: 065
  4. DOXYCYCLINE [Concomitant]
     Indication: PRODUCT USED FOR UNKNOWN INDICATION
     Dosage: 200 mg, qd
     Route: 065
  5. AMBISOME [Concomitant]
     Indication: PRODUCT USED FOR UNKNOWN INDICATION
     Dosage: 350 mg, qd
     Route: 065
  6. VORICONAZOLE [Concomitant]
     Indication: PRODUCT USED FOR UNKNOWN INDICATION
     Dosage: 500 mg, qd
     Route: 065
  7. AMIODARONE HCL [Concomitant]
     Indication: PRODUCT USED FOR UNKNOWN INDICATION
     Dosage: 300 mg, qd
     Route: 065

REACTIONS (12)
  - Cardiac failure [Fatal]
  - Cardiac arrest [Fatal]
  - Cerebrovascular accident [Fatal]
  - Cerebral ischaemia [Fatal]
  - Neutropenia [Fatal]
  - Splenic lesion [Fatal]
  - Splenic infarction [Unknown]
  - Hepatic lesion [Fatal]
  - Fungal infection [Fatal]
  - Infection [Fatal]
  - Septic embolus [Fatal]
  - Febrile neutropenia [Fatal]
